APPROVED DRUG PRODUCT: HYDROCORTISONE
Active Ingredient: HYDROCORTISONE
Strength: 1%
Dosage Form/Route: OINTMENT;TOPICAL
Application: A080692 | Product #001 | TE Code: AT
Applicant: FOUGERA PHARMACEUTICALS INC
Approved: Approved Prior to Jan 1, 1982 | RLD: Yes | RS: Yes | Type: RX